FAERS Safety Report 24002582 (Version 2)
Quarter: 2024Q3

REPORT INFORMATION
  Report Type: Spontaneous
  Country: JP (occurrence: JP)
  Receive Date: 20240623
  Receipt Date: 20240703
  Transmission Date: 20241017
  Serious: No
  Sender: TAKEDA
  Company Number: JP-TAKEDA-2024TJP009288

PATIENT
  Age: 9 Decade
  Sex: Male

DRUGS (3)
  1. ADYNOVATE [Suspect]
     Active Substance: ANTIHEMOPHILIC FACTOR, HUMAN RECOMBINANT
     Indication: Haemophilia
     Dosage: UNK
     Route: 042
     Dates: start: 20190101, end: 202405
  2. ADYNOVATE [Suspect]
     Active Substance: ANTIHEMOPHILIC FACTOR, HUMAN RECOMBINANT
     Indication: Haemophilia
     Dosage: UNK
     Route: 042
     Dates: start: 20190101, end: 202405
  3. ADYNOVATE [Suspect]
     Active Substance: ANTIHEMOPHILIC FACTOR, HUMAN RECOMBINANT
     Indication: Haemophilia
     Dosage: UNK
     Route: 042
     Dates: start: 20190101, end: 202405

REACTIONS (1)
  - Bedridden [Not Recovered/Not Resolved]

NARRATIVE: CASE EVENT DATE: 20240101
